FAERS Safety Report 7997118-3 (Version None)
Quarter: 2011Q4

REPORT INFORMATION
  Report Type: 
  Country: None (occurrence: None)
  Receive Date: 20111216
  Receipt Date: 20111208
  Transmission Date: 20120403
  Serious: Yes (Hospitalization)
  Sender: FDA-Public Use
  Company Number: 2011MA017559

PATIENT
  Age: 73 Year
  Sex: Female

DRUGS (7)
  1. SIMVASTATIN [Concomitant]
  2. FUROSEMIDE [Suspect]
     Dosage: 40 MG;QD;PO
     Route: 048
  3. METFORMIN HCL [Suspect]
     Dosage: 1 G,TID;PO
     Route: 048
  4. ASPIRIN [Suspect]
     Dosage: 75 MG;QD;PO
     Route: 048
  5. QUININE [Concomitant]
  6. RAMIPRIL [Suspect]
     Dosage: 10 MG;QD;PO
     Route: 048
  7. MOXONIDINE [Concomitant]

REACTIONS (2)
  - HYPERKALAEMIA [None]
  - RENAL FAILURE ACUTE [None]
